FAERS Safety Report 22599601 (Version 1)
Quarter: 2023Q2

REPORT INFORMATION
  Report Type: Spontaneous
  Country: TR (occurrence: TR)
  Receive Date: 20230614
  Receipt Date: 20230614
  Transmission Date: 20230721
  Serious: Yes (Hospitalization, Other)
  Sender: FDA-Public Use
  Company Number: TR-BoehringerIngelheim-2023-BI-243864

PATIENT
  Age: 53 Year
  Sex: Female
  Weight: 65 kg

DRUGS (1)
  1. JARDIANCE [Suspect]
     Active Substance: EMPAGLIFLOZIN
     Indication: Diabetes mellitus
     Route: 048
     Dates: start: 20211210

REACTIONS (3)
  - Abscess [Recovered/Resolved]
  - Fournier^s gangrene [Unknown]
  - Vaginal infection [Unknown]

NARRATIVE: CASE EVENT DATE: 20230522
